FAERS Safety Report 13748740 (Version 3)
Quarter: 2018Q1

REPORT INFORMATION
  Report Type: Spontaneous
  Country: JP (occurrence: JP)
  Receive Date: 20170713
  Receipt Date: 20180320
  Transmission Date: 20180508
  Serious: Yes (Hospitalization)
  Sender: FDA-Public Use
  Company Number: JP-009507513-1707JPN001289

PATIENT
  Age: 70 Year
  Sex: Male

DRUGS (12)
  1. BAYASPIRIN [Concomitant]
     Active Substance: ASPIRIN
     Dosage: UNK
  2. PEMETREXED DISODIUM [Concomitant]
     Active Substance: PEMETREXED DISODIUM
     Dosage: UNK
     Dates: start: 201508, end: 201510
  3. GLACTIV [Suspect]
     Active Substance: SITAGLIPTIN
     Indication: TYPE 2 DIABETES MELLITUS
     Dosage: 100 MG, QD, STRENGTH 12.5MG, 25MG, 50 MG, 100 MG
     Route: 048
  4. OPDIVO [Suspect]
     Active Substance: NIVOLUMAB
     Indication: NON-SMALL CELL LUNG CANCER RECURRENT
     Dosage: 3 MG/KG, QD, STRENGTH 20 MG, 100 MG
     Route: 041
     Dates: start: 20161028, end: 20161028
  5. MAGLAX (MAGNESIUM OXIDE) [Concomitant]
     Active Substance: MAGNESIUM OXIDE
     Dosage: UNK
  6. CRESTOR [Concomitant]
     Active Substance: ROSUVASTATIN CALCIUM
  7. CISPLATIN. [Concomitant]
     Active Substance: CISPLATIN
     Dosage: UNK
     Dates: start: 201508
  8. TAKEPRON [Concomitant]
     Active Substance: LANSOPRAZOLE
     Dosage: UNK
  9. AMARYL [Concomitant]
     Active Substance: GLIMEPIRIDE
     Dosage: UNK
     Dates: end: 20161225
  10. OPDIVO [Suspect]
     Active Substance: NIVOLUMAB
     Dosage: 3 MG/KG, QD,  STRENGTH 20 MG, 100 MG
     Route: 041
     Dates: start: 20161115, end: 20161115
  11. ALLOPURINOL. [Concomitant]
     Active Substance: ALLOPURINOL
     Dosage: UNK
  12. PLAVIX [Concomitant]
     Active Substance: CLOPIDOGREL BISULFATE
     Dosage: UNK

REACTIONS (1)
  - Lung disorder [Recovered/Resolved]

NARRATIVE: CASE EVENT DATE: 20161129
